FAERS Safety Report 4455809-5 (Version None)
Quarter: 2004Q3

REPORT INFORMATION
  Report Type: 
  Country: None (occurrence: None)
  Receive Date: 20040920
  Receipt Date: 20040915
  Transmission Date: 20050211
  Serious: Yes (Disabling, Other)
  Sender: FDA-Public Use
  Company Number: 2004-08-1664

PATIENT
  Age: 45 Year
  Sex: Male
  Weight: 86.637 kg

DRUGS (4)
  1. PEG-INTRON [Suspect]
     Indication: HEPATITIS C
     Dosage: 150 MCG QW SUBCUTANEOUS
     Route: 058
     Dates: start: 20010701, end: 20020201
  2. REBETOL [Suspect]
     Indication: HEPATITIS C
     Dosage: 1200 MG QD ORAL
     Route: 048
     Dates: start: 20010701, end: 20020201
  3. DEXTROSTAT [Concomitant]
  4. DEXEDRINE [Concomitant]

REACTIONS (2)
  - MEMORY IMPAIRMENT [None]
  - THERAPY NON-RESPONDER [None]
